FAERS Safety Report 8433786 (Version 6)
Quarter: 2013Q1

REPORT INFORMATION
  Report Type: Spontaneous
  Country: GB (occurrence: GB)
  Receive Date: 20120229
  Receipt Date: 20130212
  Transmission Date: 20140127
  Serious: Yes (Hospitalization)
  Sender: FDA-Public Use
  Company Number: PHHY2012GB014892

PATIENT
  Sex: 0

DRUGS (7)
  1. ETHAMBUTOL [Suspect]
     Indication: TUBERCULOSIS
     Route: 048
     Dates: start: 20120127, end: 20120129
  2. ETHAMBUTOL [Suspect]
     Indication: TUBERCULOSIS
  3. RIFAMPICIN [Suspect]
     Indication: PRODUCT USED FOR UNKNOWN INDICATION
     Route: 048
     Dates: start: 20120127, end: 20120129
  4. RIFAMPICIN [Suspect]
     Route: 048
     Dates: start: 20120207
  5. ABIRATERONE ACETATE [Interacting]
     Indication: BREAST CANCER METASTATIC
     Dosage: 1000 MG, QD
     Route: 048
     Dates: start: 20111130, end: 20111203
  6. ABIRATERONE ACETATE [Interacting]
     Dates: start: 20120216
  7. ABIRATERONE [Concomitant]
     Indication: BREAST CANCER METASTATIC
     Route: 048
     Dates: start: 20111130, end: 20120202

REACTIONS (5)
  - Coordination abnormal [Recovered/Resolved]
  - Confusional state [Recovered/Resolved]
  - Muscular weakness [Recovered/Resolved]
  - Drug interaction [Recovered/Resolved]
  - Dyspnoea [Recovered/Resolved]
